FAERS Safety Report 25735172 (Version 1)
Quarter: 2025Q3

REPORT INFORMATION
  Report Type: Spontaneous
  Country: KR (occurrence: KR)
  Receive Date: 20250828
  Receipt Date: 20250828
  Transmission Date: 20251020
  Serious: Yes (Other)
  Sender: BAYER HEALTHCARE PHARMACEUTICALS INC.
  Company Number: KR-BAYER-2025A113210

PATIENT
  Age: 51 Year
  Sex: Male
  Weight: 72.3 kg

DRUGS (4)
  1. CIPROFLOXACIN [Suspect]
     Active Substance: CIPROFLOXACIN
     Indication: Stevens-Johnson syndrome
     Dosage: 250 MG, QD
     Route: 048
     Dates: start: 20240201, end: 20240206
  2. CEFACLOR [Suspect]
     Active Substance: CEFACLOR
     Indication: Stevens-Johnson syndrome
     Dosage: 1 DF, QD
     Route: 048
     Dates: start: 20240201, end: 20240206
  3. IBUPROFEN [Suspect]
     Active Substance: IBUPROFEN
     Indication: Stevens-Johnson syndrome
     Dosage: 1 DF, QD
     Route: 048
     Dates: start: 20240201, end: 20240206
  4. LOXOPROFEN SODIUM DIHYDRATE [Suspect]
     Active Substance: LOXOPROFEN SODIUM DIHYDRATE
     Indication: Stevens-Johnson syndrome
     Dosage: 1 DF, QD
     Route: 048
     Dates: start: 20240201, end: 20240206

REACTIONS (2)
  - Stevens-Johnson syndrome [Recovered/Resolved]
  - Toxic epidermal necrolysis [Recovered/Resolved]

NARRATIVE: CASE EVENT DATE: 20240206
